FAERS Safety Report 12844777 (Version 1)
Quarter: 2016Q4

REPORT INFORMATION
  Report Type: Spontaneous
  Country: CH (occurrence: CH)
  Receive Date: 20161013
  Receipt Date: 20161013
  Transmission Date: 20170207
  Serious: Yes (Hospitalization)
  Sender: FDA-Public Use
  Company Number: CH-ASTRAZENECA-2016SF03920

PATIENT
  Age: 20645 Day
  Sex: Female
  Weight: 86.2 kg

DRUGS (13)
  1. SALAZOPYRIN [Suspect]
     Active Substance: SULFASALAZINE
     Indication: POLYARTHRITIS
     Route: 048
     Dates: start: 20141101, end: 20150401
  2. EUTHYROX [Concomitant]
     Active Substance: LEVOTHYROXINE SODIUM
  3. DIAMICRON [Suspect]
     Active Substance: GLICLAZIDE
     Indication: METABOLIC SYNDROME
     Dates: start: 20160801, end: 20160815
  4. EXFORGE HCT [Suspect]
     Active Substance: AMLODIPINE BESYLATE\HYDROCHLOROTHIAZIDE\VALSARTAN
     Indication: METABOLIC SYNDROME
     Dates: start: 201603
  5. ATORVASTATIN [Suspect]
     Active Substance: ATORVASTATIN
     Indication: METABOLIC SYNDROME
  6. DAFALGAN [Suspect]
     Active Substance: ACETAMINOPHEN
     Dates: start: 201603, end: 20160912
  7. CALCIMAGON D3 [Concomitant]
     Active Substance: CALCIUM\CHOLECALCIFEROL
  8. MEDROL [Concomitant]
     Active Substance: METHYLPREDNISOLONE
     Dates: end: 20160814
  9. SIMPONI [Suspect]
     Active Substance: GOLIMUMAB
     Indication: RHEUMATOID ARTHRITIS
     Route: 058
     Dates: start: 20151101, end: 20160401
  10. NEXIUM [Suspect]
     Active Substance: ESOMEPRAZOLE MAGNESIUM
     Route: 048
     Dates: start: 201603
  11. ACTEMRA [Suspect]
     Active Substance: TOCILIZUMAB
     Indication: RHEUMATOID ARTHRITIS
     Route: 042
     Dates: start: 20150901, end: 20151001
  12. BILOL [Concomitant]
     Active Substance: BISOPROLOL
  13. METFIN [Suspect]
     Active Substance: METFORMIN HYDROCHLORIDE
     Indication: METABOLIC SYNDROME
     Dosage: NON-ASTRAZENECA PRODUCT
     Dates: start: 20160801, end: 20160815

REACTIONS (2)
  - Rheumatoid arthritis [Unknown]
  - Thrombocytopenia [Not Recovered/Not Resolved]

NARRATIVE: CASE EVENT DATE: 20160814
